FAERS Safety Report 23080020 (Version 1)
Quarter: 2023Q4

REPORT INFORMATION
  Report Type: Spontaneous
  Country: US (occurrence: US)
  Receive Date: 20231018
  Receipt Date: 20231018
  Transmission Date: 20240109
  Serious: No
  Sender: FDA-Public Use
  Company Number: US-SA-SAC20231012001732

PATIENT

DRUGS (2)
  1. ZOLPIDEM TARTRATE [Suspect]
     Active Substance: ZOLPIDEM TARTRATE
     Dosage: 7 MG (1.5 MG + 2.1 MG) OF 12 HOURS
     Route: 065
  2. INLYTA [Concomitant]
     Active Substance: AXITINIB
     Dosage: 7 MG

REACTIONS (1)
  - Drug hypersensitivity [Unknown]
